FAERS Safety Report 6818878-0 (Version None)
Quarter: 2010Q3

REPORT INFORMATION
  Report Type: 
  Country: None (occurrence: None)
  Receive Date: 20100707
  Receipt Date: 20100103
  Transmission Date: 20110219
  Serious: Yes (Other)
  Sender: FDA-Public Use
  Company Number: US-ASTRAZENECA-2010SE31186

PATIENT
  Age: 14033 Day

DRUGS (4)
  1. SEROQUEL [Suspect]
     Dosage: 25 MG TO 200 MG.
     Route: 048
     Dates: start: 20001223
  2. PAXIL [Concomitant]
     Dates: start: 20000912
  3. WELLBUTRIN SR [Concomitant]
     Dosage: 150 MG, TAKE 1 TABLET TWLC
     Dates: start: 20001022
  4. NEURONTIN [Concomitant]
     Indication: NEUROPATHY PERIPHERAL
     Dates: start: 20000101

REACTIONS (3)
  - ASTHMA [None]
  - NEUROPATHY PERIPHERAL [None]
  - OBESITY [None]
